FAERS Safety Report 5403805-3 (Version None)
Quarter: 2007Q3

REPORT INFORMATION
  Report Type: 
  Country: None (occurrence: None)
  Receive Date: 20070731
  Receipt Date: 20070731
  Transmission Date: 20080115
  Serious: Yes (Disabling)
  Sender: FDA-Public Use
  Company Number: None

PATIENT
  Sex: Male
  Weight: 79.3795 kg

DRUGS (1)
  1. PREDNISONE TAB [Suspect]
     Indication: SINUSITIS
     Dosage: 20MG  2 TABS DAILY
     Dates: start: 20020705, end: 20050906

REACTIONS (3)
  - BALANCE DISORDER [None]
  - OSTEONECROSIS [None]
  - PAIN [None]
